FAERS Safety Report 13937866 (Version 1)
Quarter: 2017Q3

REPORT INFORMATION
  Report Type: Other
  Country: FR (occurrence: FR)
  Receive Date: 20170905
  Receipt Date: 20170905
  Transmission Date: 20171127
  Serious: Yes (Life-Threatening, Hospitalization, Other)
  Sender: FDA-Public Use
  Company Number: FR-SEATTLE GENETICS-2017SGN02057

PATIENT
  Age: 29 Year
  Sex: Male

DRUGS (3)
  1. CISPLATIN, CYTARABINE, ETOPOSIDE, METHYLPREDNISOLONE [Concomitant]
     Dosage: UNK
  2. BRENTUXIMAB VEDOTIN [Suspect]
     Active Substance: BRENTUXIMAB VEDOTIN
     Indication: NON-HODGKIN^S LYMPHOMA
     Dosage: 120 MG, UNK
     Route: 042
     Dates: start: 20170530
  3. BENDAMUSTINE HYDROCHLORIDE. [Suspect]
     Active Substance: BENDAMUSTINE HYDROCHLORIDE
     Indication: NON-HODGKIN^S LYMPHOMA
     Dosage: 160 MG, UNK
     Route: 042
     Dates: start: 20170530

REACTIONS (3)
  - Cardiogenic shock [Recovered/Resolved]
  - Cardiac failure [Not Recovered/Not Resolved]
  - Ejection fraction decreased [Not Recovered/Not Resolved]

NARRATIVE: CASE EVENT DATE: 20170709
